FAERS Safety Report 9933626 (Version 2)
Quarter: 2014Q1

REPORT INFORMATION
  Report Type: Report from Study
  Country: US (occurrence: US)
  Receive Date: 20140228
  Receipt Date: 20140228
  Transmission Date: 20141002
  Serious: No
  Sender: FDA-Public Use
  Company Number: US-MYLANLABS-2013S1027199

PATIENT
  Age: 17 Year
  Sex: Male

DRUGS (4)
  1. AMNESTEEM CAPSULES [Suspect]
     Indication: ACNE
     Route: 048
     Dates: start: 20131015, end: 20131113
  2. EPIDUO [Concomitant]
     Indication: ACNE
  3. CLARITIN /00917501/ [Concomitant]
  4. ZYRTEC [Concomitant]

REACTIONS (2)
  - Depressed mood [Recovered/Resolved]
  - Mood altered [Recovered/Resolved]
